FAERS Safety Report 9616257 (Version 1)
Quarter: 2013Q4

REPORT INFORMATION
  Report Type: Spontaneous
  Country: US (occurrence: None)
  Receive Date: 20131010
  Receipt Date: 20131010
  Transmission Date: 20140711
  Serious: Yes (Other)
  Sender: FDA-Public Use
  Company Number: None

PATIENT
  Age: 48 Year
  Sex: Female
  Weight: 75.5 kg

DRUGS (1)
  1. BORTEZOMIB [Suspect]
     Indication: TRANSPLANT
     Dosage: 1.3MG, 4 DOSES IN 21 DAYS, SUB Q
     Route: 058
     Dates: start: 20130422, end: 20130923

REACTIONS (1)
  - Neuropathy peripheral [None]
